FAERS Safety Report 15652073 (Version 2)
Quarter: 2018Q4

REPORT INFORMATION
  Report Type: Spontaneous
  Country: US (occurrence: US)
  Receive Date: 20181123
  Receipt Date: 20181126
  Transmission Date: 20190205
  Serious: Yes (Other)
  Sender: FDA-Public Use
  Company Number: US-TEVA-2018-US-977632

PATIENT
  Sex: Female

DRUGS (1)
  1. CLOTRIMAZOLE CREAM [Suspect]
     Active Substance: CLOTRIMAZOLE
     Indication: VULVOVAGINAL MYCOTIC INFECTION
     Route: 065
     Dates: start: 20181111

REACTIONS (1)
  - Vaginal discharge [Unknown]

NARRATIVE: CASE EVENT DATE: 20181113
